FAERS Safety Report 9276960 (Version 2)
Quarter: 2013Q3

REPORT INFORMATION
  Report Type: Spontaneous
  Country: US (occurrence: US)
  Receive Date: 20130507
  Receipt Date: 20130905
  Transmission Date: 20140515
  Serious: No
  Sender: FDA-Public Use
  Company Number: US-ASTRAZENECA-2013SE23019

PATIENT
  Age: 29 Year
  Sex: Male
  Weight: 77.1 kg

DRUGS (1)
  1. NEXIUM [Suspect]
     Indication: GASTROOESOPHAGEAL REFLUX DISEASE
     Route: 048
     Dates: start: 2008

REACTIONS (8)
  - Chest pain [Unknown]
  - Dysphagia [Not Recovered/Not Resolved]
  - Decreased appetite [Not Recovered/Not Resolved]
  - Gait disturbance [Unknown]
  - Weight decreased [Unknown]
  - Drug intolerance [Unknown]
  - Vomiting [Not Recovered/Not Resolved]
  - Insomnia [Unknown]
